FAERS Safety Report 26116249 (Version 2)
Quarter: 2025Q4

REPORT INFORMATION
  Report Type: Spontaneous
  Country: MY (occurrence: MY)
  Receive Date: 20251203
  Receipt Date: 20251219
  Transmission Date: 20260118
  Serious: Yes (Death, Hospitalization)
  Sender: AMGEN
  Company Number: MY-AMGEN-MYSSP2025235296

PATIENT
  Age: 67 Year
  Sex: Male

DRUGS (1)
  1. REPATHA [Suspect]
     Active Substance: EVOLOCUMAB
     Indication: Product used for unknown indication
     Dosage: UNK
     Route: 065

REACTIONS (2)
  - Death [Fatal]
  - Ill-defined disorder [Not Recovered/Not Resolved]
